FAERS Safety Report 9693829 (Version 1)
Quarter: 2013Q4

REPORT INFORMATION
  Report Type: Spontaneous
  Country: GB (occurrence: GB)
  Receive Date: 20131118
  Receipt Date: 20131118
  Transmission Date: 20140711
  Serious: Yes (Other)
  Sender: FDA-Public Use
  Company Number: PHFR2013GB006497

PATIENT
  Age: 34 Year
  Sex: Male

DRUGS (3)
  1. TEGRETOL [Suspect]
     Indication: EPILEPSY
     Dosage: TEGRETOL PROLONGED RELEASE; 7 TABLETS IN THE MORNING, 6 AND HALF TABLETS AT NIGHT
     Route: 048
     Dates: start: 201208
  2. TEGRETOL [Suspect]
     Indication: EPILEPSY
     Dosage: TEGRETOL RETARD
     Dates: start: 2005
  3. KEPPRA [Concomitant]
     Dosage: 5 TABLETS IN THE MORNING AND 5 TABLETS IN THE EVENING

REACTIONS (1)
  - Hypocalcaemia [Not Recovered/Not Resolved]
